FAERS Safety Report 8904511 (Version 1)
Quarter: 2012Q4

REPORT INFORMATION
  Report Type: 
  Country: US (occurrence: US)
  Receive Date: 20121113
  Receipt Date: 20121113
  Transmission Date: 20130627
  Serious: Yes (Hospitalization, Other)
  Sender: FDA-Public Use
  Company Number: US-UCBSA-070424

PATIENT
  Age: 29 Year
  Sex: Female
  Weight: 86.18 kg

DRUGS (12)
  1. VIMPAT [Suspect]
     Indication: GRAND MAL CONVULSION
     Route: 042
     Dates: start: 20121019, end: 20121026
  2. VIMPAT [Suspect]
     Indication: GRAND MAL CONVULSION
     Dosage: 100MG MORNING,100MG AT NIGHT
     Route: 048
     Dates: start: 20121026
  3. KEPPRA [Suspect]
     Indication: GRAND MAL CONVULSION
     Route: 042
     Dates: start: 20121019, end: 20121026
  4. LEVETIRACETAM [Suspect]
     Indication: GRAND MAL CONVULSION
     Dosage: 1500 MG IN THE MORNING AND 1500 MG IN THE EVENING
     Route: 048
     Dates: start: 20121026
  5. HYDROXYZINE [Concomitant]
     Indication: PRURITUS
     Dosage: 1-2 TIMES A DAY, SINCE 6 MONTHS
     Route: 048
  6. LAMICTAL [Concomitant]
     Indication: GRAND MAL CONVULSION
     Dosage: THREE YEARS AT THAT DOSE IN THE MORNING
     Route: 048
  7. ZONIGRAN [Concomitant]
     Indication: GRAND MAL CONVULSION
     Dosage: SINCE THREE YEARS (AT NIGHT)
     Route: 048
  8. MORPHINE [Concomitant]
     Dosage: SINCE THREE MONTHS
     Route: 048
  9. PRILOSEC [Concomitant]
     Indication: GASTROOESOPHAGEAL REFLUX DISEASE
     Dosage: AT LEAST A YEAR (MORNING)
     Route: 048
  10. ZOFRAN [Concomitant]
     Indication: NAUSEA
     Dosage: SINCE COUPLE OF YEARS
     Route: 048
  11. VITAMIN (WOMEN^S ONE A DAY) [Concomitant]
     Dosage: TAKING FROM YEARS
     Route: 048
  12. IBUPROFEN [Concomitant]
     Indication: MYALGIA
     Dosage: 200 MG (3 TABLETS AS NEEDED), SINCE 13 YEARS
     Route: 048

REACTIONS (11)
  - Palpitations [Not Recovered/Not Resolved]
  - Urine odour abnormal [Not Recovered/Not Resolved]
  - Urine output increased [Not Recovered/Not Resolved]
  - Nausea [Not Recovered/Not Resolved]
  - Chest pain [Not Recovered/Not Resolved]
  - Insomnia [Not Recovered/Not Resolved]
  - Renal pain [Not Recovered/Not Resolved]
  - Feeling of body temperature change [Not Recovered/Not Resolved]
  - Dyspnoea [Not Recovered/Not Resolved]
  - Bradyphrenia [Not Recovered/Not Resolved]
  - Tremor [Not Recovered/Not Resolved]
